FAERS Safety Report 11635404 (Version 1)
Quarter: 2015Q4

REPORT INFORMATION
  Report Type: Spontaneous
  Country: US (occurrence: US)
  Receive Date: 20151016
  Receipt Date: 20151016
  Transmission Date: 20160304
  Serious: No
  Sender: FDA-Public Use
  Company Number: US-SUN PHARMACEUTICAL INDUSTRIES LTD-2015US-94940

PATIENT
  Sex: Female

DRUGS (1)
  1. PSEUDOEPHEDRINE [Suspect]
     Active Substance: PSEUDOEPHEDRINE
     Indication: PRODUCT USED FOR UNKNOWN INDICATION
     Dosage: UNK
     Route: 065
     Dates: start: 20150304

REACTIONS (4)
  - Arthropod sting [Unknown]
  - Erythema [Unknown]
  - Rash generalised [Unknown]
  - Thermal burn [Unknown]

NARRATIVE: CASE EVENT DATE: 20150304
